FAERS Safety Report 14679163 (Version 1)
Quarter: 2018Q1

REPORT INFORMATION
  Report Type: Spontaneous
  Country: US (occurrence: US)
  Receive Date: 20180326
  Receipt Date: 20180326
  Transmission Date: 20180509
  Serious: No
  Sender: FDA-Public Use
  Company Number: US-PFIZER INC-2018120178

PATIENT
  Age: 71 Year
  Sex: Female
  Weight: 62.6 kg

DRUGS (7)
  1. REVATIO [Suspect]
     Active Substance: SILDENAFIL CITRATE
     Indication: SCLERODERMA
     Dosage: 0.5 TEASPOON BY MOUTH/STARTED TAKING REVATIO AS HALF A TEASPOON AND TOOK HALF A TEASPOON FOR 3 DAYS
     Route: 048
     Dates: start: 201801
  2. REVATIO [Suspect]
     Active Substance: SILDENAFIL CITRATE
     Indication: POOR PERIPHERAL CIRCULATION
     Dosage: INCREASED THE DOSE FROM THERE/CURRENTLY TAKING 1ML/10MG ONCE IN THE MORNING AND ONCE AT NIGHT
  3. TYLENOL WITH CODEINE [Concomitant]
     Active Substance: ACETAMINOPHEN\CODEINE PHOSPHATE
     Indication: PAIN
     Dosage: [CODEINE, 60MG]/[ACETAMINOPHEN, 300MG]300/60MG TABLETS.  HALF A TABLET BY MOUTH AT NIGHT IF NEEDED
     Route: 048
  4. NEXIUM [Concomitant]
     Active Substance: ESOMEPRAZOLE MAGNESIUM
     Indication: GASTROOESOPHAGEAL REFLUX DISEASE
     Dosage: 20 MG, 1X/DAY (20MG CAPSULE ONCE DAILY BY MOUTH)
     Route: 048
     Dates: start: 2014
  5. NEXIUM [Concomitant]
     Active Substance: ESOMEPRAZOLE MAGNESIUM
     Indication: DYSPEPSIA
  6. TRAMADOL HYDROCHLORIDE AND ACETAMINOPHEN [Concomitant]
     Active Substance: ACETAMINOPHEN\TRAMADOL HYDROCHLORIDE
     Indication: PAIN
     Dosage: [TRAMADOL, 37.5MG]/[ACETAMINOPHEN, 325MG]37.5MG/325MG CRUSHED TABLETS BY MOUTH AS NEEDED.
     Route: 048
  7. LISINOPRIL. [Concomitant]
     Active Substance: LISINOPRIL
     Indication: HYPERTENSION
     Dosage: 20 MG, 1X/DAY (20MG TABLET ONCE DAILY BY MOUTH)
     Route: 048

REACTIONS (5)
  - Influenza like illness [Recovered/Resolved]
  - Intentional product misuse [Unknown]
  - Nasopharyngitis [Unknown]
  - Product use in unapproved indication [Unknown]
  - Gastroenteritis viral [Unknown]

NARRATIVE: CASE EVENT DATE: 201801
